FAERS Safety Report 14820133 (Version 1)
Quarter: 2018Q2

REPORT INFORMATION
  Report Type: Spontaneous
  Country: ES (occurrence: ES)
  Receive Date: 20180427
  Receipt Date: 20180427
  Transmission Date: 20180711
  Serious: Yes (Life-Threatening, Hospitalization)
  Sender: FDA-Public Use
  Company Number: ES-ASTRAZENECA-2018SE54686

PATIENT
  Age: 64 Year
  Sex: Male

DRUGS (4)
  1. AKINETON [Concomitant]
     Active Substance: BIPERIDEN HYDROCHLORIDE
     Indication: SCHIZOPHRENIA
     Route: 048
     Dates: start: 20160615, end: 20180311
  2. DIAZEPAM. [Interacting]
     Active Substance: DIAZEPAM
     Indication: MUSCULOSKELETAL PAIN
     Route: 048
     Dates: start: 20180309, end: 20180311
  3. QUETIAPINE. [Suspect]
     Active Substance: QUETIAPINE
     Indication: SCHIZOPHRENIA
     Route: 048
     Dates: start: 20160615, end: 20180311
  4. PAROXETINE. [Interacting]
     Active Substance: PAROXETINE
     Indication: SCHIZOPHRENIA
     Route: 048
     Dates: start: 20160615, end: 20180311

REACTIONS (1)
  - Coma [Recovered/Resolved]

NARRATIVE: CASE EVENT DATE: 20180311
